FAERS Safety Report 21943117 (Version 6)
Quarter: 2023Q4

REPORT INFORMATION
  Report Type: Spontaneous
  Country: CA (occurrence: CA)
  Receive Date: 20230202
  Receipt Date: 20231219
  Transmission Date: 20240109
  Serious: Yes (Hospitalization, Other)
  Sender: FDA-Public Use
  Company Number: CA-CELLTRION INC.-2022CA007103

PATIENT

DRUGS (19)
  1. INFLECTRA [Suspect]
     Active Substance: INFLIXIMAB-DYYB
     Indication: Cardiac sarcoidosis
     Dosage: 325 MG, INDUCTION AT Q 0 ,2 , 6 WEEK THEN EVERY 8 WEEKS
     Route: 042
     Dates: start: 20220407, end: 20220914
  2. INFLECTRA [Suspect]
     Active Substance: INFLIXIMAB-DYYB
     Dosage: 325 MG, INDUCTION AT Q 0 ,2 , 6 WEEK THEN EVERY 8 WEEKS
     Route: 042
     Dates: start: 20220512
  3. INFLECTRA [Suspect]
     Active Substance: INFLIXIMAB-DYYB
     Dosage: 325 MG, INDUCTION AT Q 0 ,2 , 6 WEEK THEN EVERY 8 WEEKS
     Route: 042
     Dates: start: 20220714
  4. INFLECTRA [Suspect]
     Active Substance: INFLIXIMAB-DYYB
     Dosage: 325 MG, INDUCTION AT Q 0 ,2 , 6 WEEK THEN EVERY 8 WEEKS
     Route: 042
     Dates: start: 20220914
  5. INFLECTRA [Suspect]
     Active Substance: INFLIXIMAB-DYYB
     Dosage: 325 MG, INDUCTION AT Q 0 ,2 , 6 WEEK THEN EVERY 8 WEEKS
     Route: 042
     Dates: start: 20221024
  6. INFLECTRA [Suspect]
     Active Substance: INFLIXIMAB-DYYB
     Dosage: 325 MG, INDUCTION AT Q 0 ,2 , 6 WEEK THEN EVERY 8 WEEKS
     Route: 042
     Dates: start: 20221024
  7. INFLECTRA [Suspect]
     Active Substance: INFLIXIMAB-DYYB
     Dosage: 325 MG EVERY 6 WEEK
     Route: 042
     Dates: start: 20221024, end: 20230906
  8. INFLECTRA [Suspect]
     Active Substance: INFLIXIMAB-DYYB
     Dosage: 325 MG EVERY 6 WEEK
     Route: 042
     Dates: start: 20221206
  9. INFLECTRA [Suspect]
     Active Substance: INFLIXIMAB-DYYB
     Dosage: 325 MG EVERY 6 WEEK
     Route: 042
     Dates: start: 20230208
  10. INFLECTRA [Suspect]
     Active Substance: INFLIXIMAB-DYYB
     Dosage: 325 MG EVERY 6 WEEK
     Route: 042
     Dates: start: 20230906
  11. INFLECTRA [Suspect]
     Active Substance: INFLIXIMAB-DYYB
     Dosage: 325 MG EVERY 6 WEEK
     Route: 042
     Dates: start: 20230906
  12. INFLECTRA [Suspect]
     Active Substance: INFLIXIMAB-DYYB
     Dosage: 325 MG EVERY 6 WEEK
     Route: 042
     Dates: start: 20231130
  13. ADALIMUMAB [Concomitant]
     Active Substance: ADALIMUMAB\ISOPROPYL ALCOHOL
     Dosage: 40 MG, WEEKLY
     Route: 058
  14. ADALIMUMAB [Concomitant]
     Active Substance: ADALIMUMAB\ISOPROPYL ALCOHOL
     Dosage: 40 MG, 1X2 WEEK
     Route: 058
  15. ADALIMUMAB [Concomitant]
     Active Substance: ADALIMUMAB\ISOPROPYL ALCOHOL
     Dosage: 40 MG, EVERY 2 WEEKS
     Route: 058
     Dates: start: 202010
  16. ADALIMUMAB [Concomitant]
     Active Substance: ADALIMUMAB\ISOPROPYL ALCOHOL
     Dosage: 40 MG, WEEKLY
     Route: 058
     Dates: start: 20220323
  17. IDACIO [Concomitant]
     Active Substance: ADALIMUMAB-AACF
     Dosage: UNK
  18. LIPITOR [Concomitant]
     Active Substance: ATORVASTATIN CALCIUM
     Indication: Blood cholesterol abnormal
     Dosage: UNK
  19. PREDNISONE [Concomitant]
     Active Substance: PREDNISONE
     Dosage: UNK

REACTIONS (19)
  - Cerebrovascular accident [Not Recovered/Not Resolved]
  - Mutism [Recovered/Resolved]
  - Hemiparesis [Recovered/Resolved]
  - Fatigue [Not Recovered/Not Resolved]
  - Crohn^s disease [Unknown]
  - Large intestinal stenosis [Unknown]
  - Immunosuppression [Unknown]
  - Angioedema [Recovered/Resolved]
  - Epistaxis [Recovered/Resolved]
  - Fatigue [Recovered/Resolved]
  - COVID-19 [Recovered/Resolved]
  - Dysphonia [Recovered/Resolved]
  - Swollen tongue [Recovered/Resolved]
  - Urticaria [Recovered/Resolved]
  - Abdominal pain [Recovered/Resolved]
  - Diarrhoea [Recovered/Resolved]
  - Off label use [Unknown]
  - Inappropriate schedule of product administration [Unknown]
  - Hiatus hernia [Unknown]

NARRATIVE: CASE EVENT DATE: 20220714
